FAERS Safety Report 8846556 (Version 2)
Quarter: 2012Q4

REPORT INFORMATION
  Report Type: Report from Study
  Country: JP (occurrence: JP)
  Receive Date: 20121017
  Receipt Date: 20121030
  Transmission Date: 20130627
  Serious: Yes (Other)
  Sender: FDA-Public Use
  Company Number: JP-GLAXOSMITHKLINE-B0837968A

PATIENT
  Age: 57 Year
  Sex: Female
  Weight: 55 kg

DRUGS (7)
  1. TYKERB [Suspect]
     Indication: BREAST CANCER
     Route: 048
     Dates: start: 20120131, end: 20120424
  2. TYKERB [Suspect]
     Indication: BREAST CANCER
     Route: 048
     Dates: start: 20120508, end: 20120704
  3. TYKERB [Suspect]
     Indication: BREAST CANCER
     Route: 048
     Dates: start: 20120911
  4. XELODA [Concomitant]
     Route: 048
     Dates: start: 20120131, end: 20120424
  5. XELODA [Concomitant]
     Route: 048
     Dates: start: 20120508, end: 20120704
  6. XELODA [Concomitant]
     Route: 048
     Dates: start: 20120911
  7. ZOMETA [Concomitant]
     Indication: METASTASES TO BONE
     Route: 042
     Dates: start: 20120731

REACTIONS (2)
  - Oedema peripheral [Recovered/Resolved]
  - Pneumonia [Recovered/Resolved]
